FAERS Safety Report 17715750 (Version 1)
Quarter: 2020Q2

REPORT INFORMATION
  Report Type: Spontaneous
  Country: DE (occurrence: DE)
  Receive Date: 20200427
  Receipt Date: 20200427
  Transmission Date: 20200714
  Serious: Yes (Life-Threatening, Other)
  Sender: FDA-Public Use
  Company Number: DE-009507513-2004DEU008054

PATIENT
  Sex: Female
  Weight: 116 kg

DRUGS (9)
  1. PANTOPRAZOLE [Suspect]
     Active Substance: PANTOPRAZOLE
     Route: 065
  2. DIPYRONE [Suspect]
     Active Substance: DIPYRONE
     Route: 065
  3. ESCITALOPRAM [Suspect]
     Active Substance: ESCITALOPRAM OXALATE
     Route: 065
  4. OMEPRAZOLE. [Suspect]
     Active Substance: OMEPRAZOLE
     Route: 065
  5. TORSEMIDE. [Suspect]
     Active Substance: TORSEMIDE
     Route: 065
  6. MORPHINE [Suspect]
     Active Substance: MORPHINE
     Route: 065
  7. LOSARTAN POTASSIUM. [Suspect]
     Active Substance: LOSARTAN POTASSIUM
     Route: 065
  8. ALBUTEROL. [Suspect]
     Active Substance: ALBUTEROL
     Route: 065
  9. PRIDINOL [Suspect]
     Active Substance: PRIDINOL
     Route: 065

REACTIONS (3)
  - Thrombosis [Recovering/Resolving]
  - Pain [Recovering/Resolving]
  - Peripheral swelling [Recovering/Resolving]

NARRATIVE: CASE EVENT DATE: 20200112
